FAERS Safety Report 8928305 (Version 2)
Quarter: 2013Q1

REPORT INFORMATION
  Report Type: Spontaneous
  Country: US (occurrence: None)
  Receive Date: 20121120
  Receipt Date: 20130111
  Transmission Date: 20140127
  Serious: Yes (Other)
  Sender: FDA-Public Use
  Company Number: CRC-12-552

PATIENT
  Age: 67 Year
  Sex: Female
  Weight: 74.84 kg

DRUGS (3)
  1. METFORMIN HCL EXTENDED-RELEASE TABLETS [Suspect]
     Indication: DIABETES MELLITUS
     Dosage: 5 TABLETS DAILY; ORALLY
     Route: 048
     Dates: start: 20120803, end: 20121009
  2. SPIRONOLACTONE [Concomitant]
  3. NORVASC [Concomitant]

REACTIONS (11)
  - Blood glucose decreased [None]
  - Blood glucose increased [None]
  - Nausea [None]
  - Vomiting [None]
  - Aphagia [None]
  - Weight decreased [None]
  - Tremor [None]
  - Tremor [None]
  - Lactic acidosis [None]
  - Product quality issue [None]
  - Product substitution issue [None]
